FAERS Safety Report 4317140-8 (Version None)
Quarter: 2004Q1

REPORT INFORMATION
  Report Type: 
  Country: None (occurrence: None)
  Receive Date: 20040312
  Receipt Date: 20040302
  Transmission Date: 20041129
  Serious: Yes (Hospitalization)
  Sender: FDA-Public Use
  Company Number: 2004CG00437

PATIENT
  Age: 41 Year
  Sex: Female

DRUGS (3)
  1. DIPRIVAN [Suspect]
     Indication: ANAESTHESIA
     Dates: start: 20030513, end: 20030513
  2. TRACRIUM [Suspect]
     Indication: ANAESTHESIA
     Dates: start: 20030513, end: 20030513
  3. SUFENTA [Suspect]
     Indication: ANAESTHESIA
     Dates: start: 20030513, end: 20030513

REACTIONS (2)
  - ERYTHEMA [None]
  - HYPOTENSION [None]
